FAERS Safety Report 23384573 (Version 2)
Quarter: 2024Q1

REPORT INFORMATION
  Report Type: Report from Study
  Country: CN (occurrence: CN)
  Receive Date: 20240109
  Receipt Date: 20240117
  Transmission Date: 20240409
  Serious: No
  Sender: FDA-Public Use
  Company Number: CN-PFIZER INC-PV202400002893

PATIENT
  Age: 82 Year
  Sex: Female

DRUGS (30)
  1. NIRMATRELVIR\RITONAVIR [Suspect]
     Active Substance: NIRMATRELVIR\RITONAVIR
     Indication: COVID-19 treatment
     Dosage: [NIRMATRELVIR 300MG]/[RITONAVIR 100MG], Q12H
     Route: 048
     Dates: start: 20220422, end: 20220427
  2. NIRMATRELVIR\RITONAVIR [Suspect]
     Active Substance: NIRMATRELVIR\RITONAVIR
     Dosage: [NIRMATRELVIR 300MG]/[RITONAVIR 100MG], Q12H
     Route: 048
     Dates: start: 20220430, end: 20220504
  3. ENTERAL NUTRITIONAL SUSPENSION (TPF) [Concomitant]
     Indication: Supportive care
     Dosage: UNK
     Route: 050
     Dates: start: 20220414, end: 20220504
  4. ISOSORBIDE MONONITRATE [Concomitant]
     Active Substance: ISOSORBIDE MONONITRATE
     Indication: Coronary artery disease
     Dosage: SUSTAINED-RELEASE CAPSULES
     Route: 048
     Dates: start: 20220414, end: 20220414
  5. FEBUXOSTAT [Concomitant]
     Active Substance: FEBUXOSTAT
     Indication: Blood uric acid increased
     Dosage: UNK
     Route: 048
     Dates: start: 20220414, end: 20220504
  6. CEFEPIME HYDROCHLORIDE [Concomitant]
     Active Substance: CEFEPIME HYDROCHLORIDE
     Indication: Infection
     Dosage: UNK
     Route: 042
     Dates: start: 20220422, end: 20220422
  7. CEFEPIME HYDROCHLORIDE [Concomitant]
     Active Substance: CEFEPIME HYDROCHLORIDE
     Dosage: UNK
     Route: 042
     Dates: start: 20220423, end: 20220427
  8. MOXIFLOXACIN HYDROCHLORIDE [Concomitant]
     Active Substance: MOXIFLOXACIN HYDROCHLORIDE\MOXIFLOXACIN HYDROCHLORIDE MONOHYDRATE
     Indication: Infection
     Dosage: UNK
     Route: 042
     Dates: start: 20220424, end: 20220501
  9. MEROPENEM [Concomitant]
     Active Substance: MEROPENEM
     Indication: Infection
     Dosage: UNK
     Route: 042
     Dates: start: 20220430, end: 20220504
  10. IPRATROPIUM BROMIDE [Concomitant]
     Active Substance: IPRATROPIUM BROMIDE\IPRATROPIUM BROMIDE ANHYDROUS
     Indication: Productive cough
     Dosage: SOLUTION FOR INHALATION
     Route: 055
     Dates: start: 20220430, end: 20220504
  11. IPRATROPIUM BROMIDE [Concomitant]
     Active Substance: IPRATROPIUM BROMIDE\IPRATROPIUM BROMIDE ANHYDROUS
     Indication: Asthma
  12. CHYMOTRYPSIN [Concomitant]
     Active Substance: CHYMOTRYPSIN
     Indication: Productive cough
     Dosage: UNK
     Route: 055
     Dates: start: 20220430, end: 20220504
  13. CHYMOTRYPSIN [Concomitant]
     Active Substance: CHYMOTRYPSIN
     Indication: Asthma
  14. BUDESONIDE [Concomitant]
     Active Substance: BUDESONIDE
     Indication: Productive cough
     Dosage: SUSPENSION FOR INHALATION
     Route: 055
     Dates: start: 20220430, end: 20220504
  15. BUDESONIDE [Concomitant]
     Active Substance: BUDESONIDE
     Indication: Asthma
  16. THYMALFASIN [Concomitant]
     Active Substance: THYMALFASIN
     Indication: Immunodeficiency
     Dosage: UNK
     Route: 058
     Dates: start: 20220501, end: 20220504
  17. HEPARIN SODIUM [Concomitant]
     Active Substance: HEPARIN SODIUM
     Indication: Anticoagulant therapy
     Dosage: FLUXUM
     Route: 058
     Dates: start: 20220501, end: 20220504
  18. ANDROGRAPHOLIDE [Concomitant]
     Active Substance: ANDROGRAPHOLIDE
     Indication: COVID-19 treatment
     Dosage: UNK
     Route: 042
     Dates: start: 20220502, end: 20220504
  19. AMBROXOL HYDROCHLORIDE [Concomitant]
     Active Substance: AMBROXOL HYDROCHLORIDE
     Indication: Productive cough
     Dosage: UNK
     Route: 048
     Dates: start: 20220419, end: 20220419
  20. DEXAMETHASONE SODIUM PHOSPHATE [Concomitant]
     Active Substance: DEXAMETHASONE PHOSPHATE\DEXAMETHASONE SODIUM PHOSPHATE
     Indication: Antiinflammatory therapy
     Dosage: UNK
     Route: 042
     Dates: start: 20220424, end: 20220424
  21. ASPIRIN [Concomitant]
     Active Substance: ASPIRIN
     Indication: Coronary artery disease
     Dosage: ENTERIC-COATED TABLETS
     Route: 048
     Dates: start: 20220414, end: 20220414
  22. ASPIRIN [Concomitant]
     Active Substance: ASPIRIN
     Indication: Cerebral infarction
  23. ATORVASTATIN CALCIUM [Concomitant]
     Active Substance: ATORVASTATIN CALCIUM
     Indication: Coronary artery disease
     Dosage: UNK
     Route: 048
     Dates: start: 20220414, end: 20220414
  24. ATORVASTATIN CALCIUM [Concomitant]
     Active Substance: ATORVASTATIN CALCIUM
     Indication: Cerebral infarction
  25. DIGOXIN [Concomitant]
     Active Substance: DIGOXIN
     Indication: Coronary artery disease
     Dosage: UNK
     Route: 048
     Dates: start: 20220414, end: 20220430
  26. ALLISARTAN ISOPROXIL [Concomitant]
     Active Substance: ALLISARTAN ISOPROXIL
     Indication: Hypertension
     Dosage: UNK
     Route: 048
     Dates: start: 20220414, end: 20220414
  27. CLOPIDOGREL BISULFATE [Concomitant]
     Active Substance: CLOPIDOGREL BISULFATE
     Indication: Coronary artery disease
     Dosage: UNK
     Route: 048
     Dates: start: 20220414, end: 20220430
  28. ISOSORBIDE MONONITRATE [Concomitant]
     Active Substance: ISOSORBIDE MONONITRATE
     Indication: Coronary artery disease
     Dosage: UNK
     Route: 048
     Dates: start: 20220414, end: 20220430
  29. METOPROLOL SUCCINATE [Concomitant]
     Active Substance: METOPROLOL SUCCINATE
     Indication: Hypertension
     Dosage: EXTENDED-RELEASE TABLETS
     Route: 048
     Dates: start: 20220422, end: 20220430
  30. TAN RE QING [Concomitant]
     Indication: COVID-19 treatment
     Dosage: UNK
     Route: 048
     Dates: start: 20220503, end: 20220504

REACTIONS (1)
  - Overdose [Unknown]

NARRATIVE: CASE EVENT DATE: 20220430
